FAERS Safety Report 8570635-3 (Version None)
Quarter: 2012Q3

REPORT INFORMATION
  Report Type: 
  Country: None (occurrence: None)
  Receive Date: 20120804
  Receipt Date: 20120801
  Transmission Date: 20120928
  Serious: Yes (Hospitalization)
  Sender: FDA-Public Use
  Company Number: KR-ABBOTT-08P-090-0468598-00

PATIENT
  Age: 36 Year
  Sex: Male

DRUGS (7)
  1. AMLODIPINE OROTATE [Concomitant]
     Indication: HYPERTENSION
     Dosage: 5 MG DAILY
     Route: 048
     Dates: start: 20060331
  2. HUMIRA [Suspect]
     Indication: ANKYLOSING SPONDYLITIS
     Route: 058
     Dates: start: 20080311, end: 20080506
  3. CALCIUM GLUCONATE, LACTATE, AND CARBONATE, ERGOCALCIFEROL [Concomitant]
     Indication: OSTEOPOROSIS PROPHYLAXIS
     Dosage: 2 TABS DAILY
     Route: 048
     Dates: start: 20060320
  4. ACECLOFENAC [Concomitant]
     Indication: ANKYLOSING SPONDYLITIS
     Route: 048
     Dates: start: 20060614
  5. REBAMIPIDE [Concomitant]
     Indication: PROPHYLAXIS
  6. RISEDRONATE SODIUM [Concomitant]
     Indication: OSTEOPOROSIS
     Route: 048
     Dates: start: 20060331
  7. REBAMIPIDE [Concomitant]
     Indication: GASTROINTESTINAL DISORDER
     Dosage: DAILY DOSE 200 MG
     Route: 048
     Dates: start: 20060331

REACTIONS (1)
  - CERVICAL VERTEBRAL FRACTURE [None]
